FAERS Safety Report 19936005 (Version 2)
Quarter: 2021Q4

REPORT INFORMATION
  Report Type: Spontaneous
  Country: DK (occurrence: DK)
  Receive Date: 20211009
  Receipt Date: 20211126
  Transmission Date: 20220303
  Serious: No
  Sender: FDA-Public Use
  Company Number: DK-NOVARTISPH-NVSC2021DK230071

PATIENT
  Sex: Female

DRUGS (13)
  1. COSENTYX [Suspect]
     Active Substance: SECUKINUMAB
     Indication: Rheumatoid arthritis
     Dosage: 150 MG (WEEKLY FOR A WEEK)
     Route: 058
     Dates: start: 20201113, end: 20210208
  2. COSENTYX [Suspect]
     Active Substance: SECUKINUMAB
     Indication: Axial spondyloarthritis
  3. SIMPONI [Concomitant]
     Active Substance: GOLIMUMAB
     Indication: Crohn^s disease
     Dosage: 50 MG, Q4W
     Route: 065
     Dates: start: 20160831, end: 20211113
  4. SIMPONI [Concomitant]
     Active Substance: GOLIMUMAB
     Indication: Axial spondyloarthritis
     Dosage: 50 MG, Q4W
     Route: 065
  5. SIMPONI [Concomitant]
     Active Substance: GOLIMUMAB
     Dosage: 200 MG
     Route: 065
     Dates: start: 20210901
  6. SIMPONI [Concomitant]
     Active Substance: GOLIMUMAB
     Dosage: 100 MG (AFTER 2 WEEKS)
     Route: 065
  7. SIMPONI [Concomitant]
     Active Substance: GOLIMUMAB
     Dosage: 100 MG, Q4W
     Route: 065
     Dates: start: 20210927
  8. TRAMADOL [Concomitant]
     Active Substance: TRAMADOL
     Indication: Product used for unknown indication
     Dosage: 50 MG, PRN
     Route: 048
  9. ACETAMINOPHEN [Concomitant]
     Active Substance: ACETAMINOPHEN
     Indication: Product used for unknown indication
     Dosage: 1 G, PRN
     Route: 048
  10. CITALOPRAM [Concomitant]
     Active Substance: CITALOPRAM HYDROBROMIDE
     Indication: Product used for unknown indication
     Dosage: 20 MG X 1
     Route: 048
     Dates: start: 20190820
  11. ZYBAN [Concomitant]
     Active Substance: BUPROPION HYDROCHLORIDE
     Indication: Product used for unknown indication
     Dosage: 1 DF (1 TABLET X 2)
     Route: 065
     Dates: start: 20200921, end: 20211110
  12. ADALIMUMAB [Concomitant]
     Active Substance: ADALIMUMAB
     Indication: Crohn^s disease
     Dosage: 40 MG, Q2W
     Route: 065
     Dates: start: 20210226
  13. ADALIMUMAB [Concomitant]
     Active Substance: ADALIMUMAB
     Dosage: 40 MG, QW
     Route: 065
     Dates: start: 20210617, end: 20210811

REACTIONS (2)
  - Back pain [Unknown]
  - Product use in unapproved indication [Unknown]
